FAERS Safety Report 13900655 (Version 1)
Quarter: 2017Q3

REPORT INFORMATION
  Report Type: Spontaneous
  Country: IT (occurrence: IT)
  Receive Date: 20170824
  Receipt Date: 20170824
  Transmission Date: 20171127
  Serious: Yes (Other)
  Sender: FDA-Public Use
  Company Number: IT-APOTEX-2017AP016832

PATIENT
  Age: 36 Year
  Sex: Female

DRUGS (2)
  1. LEVETIRACETAM DOC GENERICI [Suspect]
     Active Substance: LEVETIRACETAM
     Indication: PRODUCT USED FOR UNKNOWN INDICATION
     Dosage: UNK, TID
     Route: 065
  2. LEVETIRACETAM DOC GENERICI [Suspect]
     Active Substance: LEVETIRACETAM
     Dosage: UNK, QID
     Route: 065

REACTIONS (3)
  - Seizure [Recovered/Resolved]
  - Anticonvulsant drug level below therapeutic [Recovered/Resolved]
  - Exposure during pregnancy [Unknown]
